FAERS Safety Report 19442376 (Version 1)
Quarter: 2021Q2

REPORT INFORMATION
  Report Type: Other
  Country: US (occurrence: US)
  Receive Date: 20210621
  Receipt Date: 20210621
  Transmission Date: 20210717
  Serious: No
  Sender: FDA-Public Use
  Company Number: US-ACORDA-ACO_168764_2021

PATIENT
  Age: 76 Year
  Sex: Female

DRUGS (3)
  1. CARBIDOPA/LEVODOPA [Concomitant]
     Active Substance: CARBIDOPA\LEVODOPA
     Indication: PRODUCT USED FOR UNKNOWN INDICATION
     Dosage: 2 PILLS 4X/DAY
     Route: 048
  2. INBRIJA [Suspect]
     Active Substance: LEVODOPA
     Indication: ON AND OFF PHENOMENON
     Dosage: 42 MILLIGRAM: 2 CAPSULES, AS NEEDED, NOT TO EXCEED 5 DOSES A DAY
     Dates: start: 20210414
  3. INBRIJA [Suspect]
     Active Substance: LEVODOPA
     Indication: PARKINSON^S DISEASE

REACTIONS (5)
  - Device use issue [Unknown]
  - Tremor [Unknown]
  - Cough [Recovering/Resolving]
  - Retching [Recovering/Resolving]
  - Product residue present [Unknown]

NARRATIVE: CASE EVENT DATE: 20210414
